FAERS Safety Report 4661433-1 (Version None)
Quarter: 2005Q2

REPORT INFORMATION
  Report Type: 
  Country: None (occurrence: None)
  Receive Date: 20050513
  Receipt Date: 20050503
  Transmission Date: 20051028
  Serious: Yes (Other)
  Sender: FDA-Public Use
  Company Number: US-GLAXOSMITHKLINE-A0558206A

PATIENT
  Age: 37 Year
  Sex: Male

DRUGS (1)
  1. PAXIL [Suspect]
     Indication: DRUG USE FOR UNKNOWN INDICATION
     Route: 048
     Dates: start: 19960701

REACTIONS (15)
  - DEPRESSION [None]
  - DISTURBANCE IN ATTENTION [None]
  - DRUG WITHDRAWAL SYNDROME [None]
  - EYE IRRITATION [None]
  - EYE SWELLING [None]
  - HALLUCINATION [None]
  - INSOMNIA [None]
  - MOOD SWINGS [None]
  - NAUSEA [None]
  - NIGHTMARE [None]
  - PANIC ATTACK [None]
  - PARAESTHESIA [None]
  - SOCIAL PHOBIA [None]
  - SUICIDAL IDEATION [None]
  - TINNITUS [None]
